FAERS Safety Report 4442058-X (Version None)
Quarter: 2004Q3

REPORT INFORMATION
  Report Type: 
  Country: None (occurrence: None)
  Receive Date: 20040903
  Receipt Date: 20040526
  Transmission Date: 20050211
  Serious: Yes (Hospitalization)
  Sender: FDA-Public Use
  Company Number: 2004UW01952

PATIENT
  Age: 58 Year
  Sex: Female

DRUGS (19)
  1. CRESTOR [Suspect]
     Indication: HYPERLIPIDAEMIA
     Dosage: 10 MG QD PO
     Route: 048
     Dates: start: 20030826, end: 20040201
  2. ZETIA [Suspect]
     Indication: HYPERLIPIDAEMIA
     Dosage: 10 MG QD PO
     Route: 048
     Dates: start: 20030801, end: 20040119
  3. IMDUR [Concomitant]
  4. MONOPRIL [Concomitant]
  5. INSULIN [Concomitant]
  6. ALDACTONE [Concomitant]
  7. COLACE [Concomitant]
  8. COREG [Concomitant]
  9. FISH OIL [Concomitant]
  10. DIGOXIN [Concomitant]
  11. NEXIUM [Concomitant]
  12. ALDACTONE [Concomitant]
  13. IRON [Concomitant]
  14. LASIX [Concomitant]
  15. MULTI-VITAMINS [Concomitant]
  16. VITAMIN C [Concomitant]
  17. CALCIUM [Concomitant]
  18. MAGNESIUM [Concomitant]
  19. ZINC [Concomitant]

REACTIONS (1)
  - CHEST PAIN [None]
